FAERS Safety Report 9513277 (Version 1)
Quarter: 2013Q3

REPORT INFORMATION
  Report Type: Spontaneous
  Country: US (occurrence: US)
  Receive Date: 20130910
  Receipt Date: 20130910
  Transmission Date: 20140515
  Serious: No
  Sender: FDA-Public Use
  Company Number: US-JNJFOC-20130902797

PATIENT
  Age: 36 Year
  Sex: Female
  Weight: 79.83 kg

DRUGS (4)
  1. INVEGA [Suspect]
     Indication: BIPOLAR DISORDER
     Route: 048
     Dates: start: 201207
  2. INVEGA [Suspect]
     Indication: BIPOLAR DISORDER
     Route: 048
     Dates: start: 200803, end: 201207
  3. CYMBALTA [Concomitant]
     Indication: BIPOLAR DISORDER
     Route: 048
  4. ASPIRIN [Concomitant]
     Route: 048

REACTIONS (3)
  - Amenorrhoea [Recovered/Resolved]
  - Feeling abnormal [Recovered/Resolved]
  - Off label use [Not Recovered/Not Resolved]
